FAERS Safety Report 9531257 (Version 1)
Quarter: 2013Q2

REPORT INFORMATION
  Report Type: Spontaneous
  Country: US (occurrence: None)
  Receive Date: 20130419
  Receipt Date: 20130419
  Transmission Date: 20140414
  Serious: Yes (Other)
  Sender: FDA-Public Use
  Company Number: FK201203668

PATIENT
  Sex: Male

DRUGS (1)
  1. HEPARIN SODIUM (HEPARIN SODIUM) [Suspect]
     Indication: ANTICOAGULANT THERAPY
     Dosage: NOT OTHERWISE SPECIFIED
     Route: 042
     Dates: start: 20121128, end: 20121128

REACTIONS (1)
  - Drug effect decreased [None]
